FAERS Safety Report 10243097 (Version 1)
Quarter: 2014Q2

REPORT INFORMATION
  Report Type: Spontaneous
  Country: US (occurrence: None)
  Receive Date: 20140616
  Receipt Date: 20140616
  Transmission Date: 20141212
  Serious: Yes (Death)
  Sender: FDA-Public Use
  Company Number: ADR-2014-01008

PATIENT
  Age: 62 Year
  Sex: Male

DRUGS (2)
  1. COMPOUNDED BACLOFEN INTRATHECAL [Suspect]
     Indication: MUSCLE SPASTICITY
  2. MORPHINE SULFATE [Suspect]

REACTIONS (1)
  - Death [None]
